FAERS Safety Report 25033453 (Version 1)
Quarter: 2025Q1

REPORT INFORMATION
  Report Type: Spontaneous
  Country: US (occurrence: US)
  Receive Date: 20250303
  Receipt Date: 20250303
  Transmission Date: 20250408
  Serious: No
  Sender: SANOFI AVENTIS
  Company Number: US-SA-2025SA062089

PATIENT
  Sex: Female

DRUGS (10)
  1. DUPIXENT [Suspect]
     Active Substance: DUPILUMAB
     Indication: Asthma
     Dosage: 300 MG, QOW
     Route: 058
     Dates: start: 20200107
  2. ALLEGRA [Concomitant]
     Active Substance: FEXOFENADINE HYDROCHLORIDE
  3. ARMODAFINIL [Concomitant]
     Active Substance: ARMODAFINIL
  4. ARMODAFINIL [Concomitant]
     Active Substance: ARMODAFINIL
  5. BUTALBITAL, ASPIRIN, CAFFEINE AND CODEINE PHOSPHATE [Concomitant]
     Active Substance: ASPIRIN\BUTALBITAL\CAFFEINE\CODEINE PHOSPHATE
  6. DULOXETINE [Concomitant]
     Active Substance: DULOXETINE
  7. MELOXICAM [Concomitant]
     Active Substance: MELOXICAM
  8. MONTELUKAST [Concomitant]
     Active Substance: MONTELUKAST
  9. OLMESARTAN [Concomitant]
     Active Substance: OLMESARTAN
  10. OXYCODONE [Concomitant]
     Active Substance: OXYCODONE

REACTIONS (4)
  - Influenza like illness [Unknown]
  - Cough [Unknown]
  - Wheezing [Unknown]
  - Drug ineffective [Unknown]
